FAERS Safety Report 10081605 (Version 1)
Quarter: 2014Q2

REPORT INFORMATION
  Report Type: Spontaneous
  Country: US (occurrence: US)
  Receive Date: 20140416
  Receipt Date: 20140416
  Transmission Date: 20141212
  Serious: No
  Sender: FDA-Public Use
  Company Number: US-PFIZER INC-2014103817

PATIENT
  Age: 66 Year
  Sex: Female
  Weight: 52.15 kg

DRUGS (3)
  1. LYRICA [Suspect]
     Indication: NEURALGIA
     Dosage: 25 MG, 1X/DAY
     Route: 048
     Dates: start: 201401, end: 2014
  2. LYRICA [Suspect]
     Dosage: 50 MG, 1X/DAY
     Route: 048
     Dates: start: 2014, end: 2014
  3. LYRICA [Suspect]
     Dosage: 25 MG, 1X/DAY
     Route: 048
     Dates: start: 2014

REACTIONS (1)
  - Somnolence [Recovered/Resolved]
